FAERS Safety Report 15407585 (Version 1)
Quarter: 2018Q3

REPORT INFORMATION
  Report Type: Spontaneous
  Country: US (occurrence: US)
  Receive Date: 20180920
  Receipt Date: 20180920
  Transmission Date: 20181010
  Serious: No
  Sender: FDA-Public Use
  Company Number: US-AMARIN PHARMA, INC.-2018AMR000162

PATIENT
  Sex: Female

DRUGS (1)
  1. VASCEPA [Suspect]
     Active Substance: ICOSAPENT ETHYL
     Indication: BLOOD CHOLESTEROL
     Route: 048

REACTIONS (6)
  - Diarrhoea [Unknown]
  - Product odour abnormal [Unknown]
  - Product adhesion issue [Unknown]
  - Drug intolerance [Unknown]
  - Nausea [Unknown]
  - Fatigue [Unknown]
